FAERS Safety Report 8216586-5 (Version None)
Quarter: 2012Q1

REPORT INFORMATION
  Report Type: 
  Country: None (occurrence: None)
  Receive Date: 20120316
  Receipt Date: 20120312
  Transmission Date: 20120608
  Serious: Yes (Death, Other)
  Sender: FDA-Public Use
  Company Number: GB-ABBOTT-11P-167-0849406-00

PATIENT
  Sex: Female

DRUGS (1)
  1. HUMIRA [Suspect]
     Indication: RHEUMATOID ARTHRITIS
     Route: 058
     Dates: start: 20031007, end: 20040115

REACTIONS (6)
  - SEPSIS [None]
  - RECTAL ABSCESS [None]
  - WOUND [None]
  - NECROTISING FASCIITIS [None]
  - OSTEOPOROSIS [None]
  - ULCER [None]
